FAERS Safety Report 8959695 (Version 2)
Quarter: 2012Q4

REPORT INFORMATION
  Report Type: 
  Country: JP (occurrence: JP)
  Receive Date: 20121212
  Receipt Date: 20121220
  Transmission Date: 20130627
  Serious: Yes (Other)
  Sender: FDA-Public Use
  Company Number: JP-009507513-1212JPN003670

PATIENT
  Age: 34 Year
  Sex: Female

DRUGS (2)
  1. GASTER [Suspect]
     Indication: GASTRITIS
     Dosage: 40 mg, daily
     Route: 048
     Dates: start: 20120612
  2. DEPAS [Concomitant]
     Dosage: UNK
     Route: 048
     Dates: start: 20120831

REACTIONS (1)
  - Pyelonephritis [Unknown]
